FAERS Safety Report 17587214 (Version 1)
Quarter: 2020Q1

REPORT INFORMATION
  Report Type: Other
  Country: PT (occurrence: PT)
  Receive Date: 20200326
  Receipt Date: 20200326
  Transmission Date: 20200409
  Serious: Yes (Other)
  Sender: FDA-Public Use
  Company Number: PT-APPCO PHARMA LLC-2082008

PATIENT
  Age: 9 Year
  Sex: Female

DRUGS (3)
  1. ABACAVIR. [Suspect]
     Active Substance: ABACAVIR
     Route: 065
  2. LAMIVUDINE. [Suspect]
     Active Substance: LAMIVUDINE
     Indication: ACQUIRED IMMUNODEFICIENCY SYNDROME
     Route: 065
  3. LOPINAVIR/RITONAVIR [Suspect]
     Active Substance: LOPINAVIR\RITONAVIR
     Route: 065

REACTIONS (1)
  - Immune reconstitution inflammatory syndrome associated Kaposi^s sarcoma [Recovered/Resolved]
